FAERS Safety Report 8121276-3 (Version None)
Quarter: 2012Q1

REPORT INFORMATION
  Report Type: 
  Country: None (occurrence: None)
  Receive Date: 20120208
  Receipt Date: 20120201
  Transmission Date: 20120608
  Serious: Yes (Hospitalization, Disabling)
  Sender: FDA-Public Use
  Company Number: CA-CELGENEUS-028-21880-12020128

PATIENT
  Sex: Male

DRUGS (13)
  1. DEXAMETHASONE [Concomitant]
     Dosage: 40 MILLIGRAM
     Route: 065
  2. MULTAQ [Concomitant]
     Dosage: 400 MILLIGRAM
     Route: 065
  3. TEGRETOL [Concomitant]
     Dosage: 100 MILLIGRAM
     Route: 065
  4. METOPROLOL [Concomitant]
     Dosage: 25 MILLIGRAM
     Route: 065
  5. ASPIRIN [Concomitant]
     Dosage: 81 MILLIGRAM
     Route: 065
  6. REVLIMID [Suspect]
     Dosage: 5 MILLIGRAM
     Route: 048
  7. CLARITIN [Concomitant]
     Dosage: 10 MILLIGRAM
     Route: 065
  8. DIGOXIN [Concomitant]
     Dosage: .0625 MILLIGRAM
     Route: 065
  9. METFORMIN HCL [Concomitant]
     Dosage: 250 MILLIGRAM
     Route: 065
  10. SYNTHROID [Concomitant]
     Dosage: 75 MILLIGRAM
     Route: 065
  11. PANTOPRAZOLE [Concomitant]
     Dosage: 40 MILLIGRAM
     Route: 065
  12. VITAMIN D [Concomitant]
     Route: 065
  13. ATIVAN [Concomitant]
     Dosage: .5 MILLIGRAM
     Route: 065

REACTIONS (2)
  - URINARY TRACT INFECTION [None]
  - CONVULSION [None]
